FAERS Safety Report 21623930 (Version 8)
Quarter: 2023Q1

REPORT INFORMATION
  Report Type: Report from Study
  Country: US (occurrence: US)
  Receive Date: 20221121
  Receipt Date: 20230227
  Transmission Date: 20230418
  Serious: No
  Sender: FDA-Public Use
  Company Number: US-002147023-NVSC2022US261372

PATIENT

DRUGS (1)
  1. COSENTYX [Suspect]
     Active Substance: SECUKINUMAB
     Indication: Psoriasis
     Dosage: UNK
     Route: 065

REACTIONS (8)
  - Dry skin [Recovered/Resolved with Sequelae]
  - Skin fissures [Unknown]
  - Sensitive skin [Unknown]
  - Hepatic cyst [Unknown]
  - Blood pressure increased [Unknown]
  - Cough [Unknown]
  - Toothache [Unknown]
  - Psoriasis [Unknown]
